FAERS Safety Report 7099609-9 (Version None)
Quarter: 2010Q4

REPORT INFORMATION
  Report Type: 
  Country: None (occurrence: None)
  Receive Date: 20101112
  Receipt Date: 20101110
  Transmission Date: 20110411
  Serious: Yes (Death, Other)
  Sender: FDA-Public Use
  Company Number: ES-ELI_LILLY_AND_COMPANY-ES201011002185

PATIENT
  Sex: Male

DRUGS (1)
  1. ALIMTA [Suspect]

REACTIONS (2)
  - DEATH [None]
  - NERVOUS SYSTEM DISORDER [None]
